FAERS Safety Report 9353192 (Version 1)
Quarter: 2013Q2

REPORT INFORMATION
  Report Type: Spontaneous
  Country: US (occurrence: US)
  Receive Date: 20130618
  Receipt Date: 20130618
  Transmission Date: 20140414
  Serious: No
  Sender: FDA-Public Use
  Company Number: US-PFIZER INC-2013145490

PATIENT
  Age: 59 Year
  Sex: Female

DRUGS (18)
  1. LYRICA [Suspect]
     Dosage: 100 MG, 3X/DAY (TID)
     Route: 048
  2. FIORICET [Concomitant]
     Dosage: UNK
  3. CALCIUM [Concomitant]
     Dosage: UNK
  4. ALEXA [Concomitant]
     Dosage: UNK
  5. KLONOPIN [Concomitant]
     Dosage: UNK
  6. VITAMIN B12 [Concomitant]
     Dosage: UNK
  7. BENTYL [Concomitant]
     Dosage: UNK
  8. FOLATE [Concomitant]
     Dosage: UNK
  9. PREVACID [Concomitant]
     Dosage: UNK
  10. SYNTHROID [Concomitant]
     Dosage: UNK
  11. LISINOPRIL [Concomitant]
     Dosage: UNK
  12. ATIVAN [Concomitant]
     Dosage: UNK
  13. PHENERGAN [Concomitant]
     Dosage: UNK
  14. ZANAFLEX [Concomitant]
     Dosage: UNK
  15. SULFASALAZINE [Concomitant]
     Dosage: UNK
  16. VITAMIN D3 [Concomitant]
     Dosage: UNK
  17. LOPERAMIDE [Concomitant]
     Dosage: UNK
  18. SIMETHICONE [Concomitant]
     Dosage: UNK

REACTIONS (1)
  - Pain [Unknown]
